FAERS Safety Report 23319389 (Version 1)
Quarter: 2023Q4

REPORT INFORMATION
  Report Type: Spontaneous
  Country: US (occurrence: US)
  Receive Date: 20231220
  Receipt Date: 20231220
  Transmission Date: 20240110
  Serious: No
  Sender: FDA-Public Use
  Company Number: US-009507513-2311USA008606

PATIENT
  Age: 41 Year
  Sex: Female

DRUGS (4)
  1. TEMODAR [Suspect]
     Active Substance: TEMOZOLOMIDE
     Indication: Paraganglion neoplasm
     Dosage: UNK
  2. TEMODAR [Suspect]
     Active Substance: TEMOZOLOMIDE
     Indication: Metastasis
  3. CAPECITABINE [Concomitant]
     Active Substance: CAPECITABINE
     Indication: Metastasis
  4. CAPECITABINE [Concomitant]
     Active Substance: CAPECITABINE
     Indication: Paraganglion neoplasm

REACTIONS (1)
  - Product use in unapproved indication [Unknown]
